FAERS Safety Report 5499491-7 (Version None)
Quarter: 2007Q4

REPORT INFORMATION
  Report Type: 
  Country: None (occurrence: None)
  Receive Date: 20071026
  Receipt Date: 20071022
  Transmission Date: 20080405
  Serious: Yes (Other)
  Sender: FDA-Public Use
  Company Number: US-ASTRAZENECA-2007UW24588

PATIENT
  Age: 57 Year
  Sex: Female

DRUGS (3)
  1. ARIMIDEX [Suspect]
     Indication: BREAST CANCER
     Route: 048
     Dates: start: 20030101, end: 20070901
  2. ATENOLOL [Concomitant]
     Route: 048
  3. HYDROCHLOROTHIAZIDE [Concomitant]

REACTIONS (1)
  - UTERINE CANCER [None]
